FAERS Safety Report 5896589-6 (Version None)
Quarter: 2008Q3

REPORT INFORMATION
  Report Type: 
  Country: None (occurrence: None)
  Receive Date: 20080924
  Receipt Date: 20080914
  Transmission Date: 20090109
  Serious: Yes (Hospitalization, Other)
  Sender: FDA-Public Use
  Company Number: AT-PFIZER INC-2008073918

PATIENT
  Sex: Female
  Weight: 52 kg

DRUGS (1)
  1. SUTENT [Suspect]
     Indication: METASTATIC RENAL CELL CARCINOMA
     Route: 048
     Dates: start: 20080804

REACTIONS (3)
  - MACROGLOSSIA [None]
  - NEURALGIA [None]
  - TONGUE PARALYSIS [None]
